FAERS Safety Report 26077830 (Version 1)
Quarter: 2025Q4

REPORT INFORMATION
  Report Type: Spontaneous
  Country: US (occurrence: US)
  Receive Date: 20251122
  Receipt Date: 20251122
  Transmission Date: 20260117
  Serious: No
  Sender: MDD OPERATIONS
  Company Number: US-MDD US Operations-MDD202509-003465

PATIENT
  Age: 70 Year
  Sex: Male

DRUGS (7)
  1. ONAPGO [Suspect]
     Active Substance: APOMORPHINE HYDROCHLORIDE
     Indication: Parkinson^s disease
     Dosage: CONTINUOUS INFUSION
     Route: 058
     Dates: start: 202508
  2. ONAPGO [Suspect]
     Active Substance: APOMORPHINE HYDROCHLORIDE
     Indication: Dyskinesia
     Dosage: CONTINUOUS INFUSION
     Route: 058
     Dates: start: 20250828
  3. ONAPGO [Suspect]
     Active Substance: APOMORPHINE HYDROCHLORIDE
     Indication: On and off phenomenon
     Dosage: CONTINUOUS INFUSION
     Route: 058
     Dates: start: 2025
  4. ONAPGO [Suspect]
     Active Substance: APOMORPHINE HYDROCHLORIDE
     Dosage: STRENGTH: 98 MG/20 ML; 1 CARTRIDGE FOR 16 HOURS OR LESS EACH DAY CONTINUOUS DOSE (MAXIMUM 6MG PER HO
     Route: 058
     Dates: start: 202508
  5. APOKYN [Suspect]
     Active Substance: APOMORPHINE HYDROCHLORIDE
     Indication: Parkinson^s disease
     Dosage: 5 TIMES DAILY
     Route: 058
     Dates: start: 20180101
  6. APOKYN [Suspect]
     Active Substance: APOMORPHINE HYDROCHLORIDE
     Indication: Dyskinesia
  7. APOKYN [Suspect]
     Active Substance: APOMORPHINE HYDROCHLORIDE
     Indication: On and off phenomenon

REACTIONS (5)
  - Peripheral swelling [Unknown]
  - Dyskinesia [Not Recovered/Not Resolved]
  - Scratch [Unknown]
  - Fall [Unknown]
  - Drug ineffective [Unknown]

NARRATIVE: CASE EVENT DATE: 20250905
